FAERS Safety Report 14315449 (Version 1)
Quarter: 2017Q4

REPORT INFORMATION
  Report Type: Spontaneous
  Country: US (occurrence: US)
  Receive Date: 20171221
  Receipt Date: 20171221
  Transmission Date: 20180321
  Serious: No
  Sender: FDA-Public Use
  Company Number: US-ACTELION-A-US2017-164512

PATIENT
  Age: 76 Year
  Sex: Female

DRUGS (22)
  1. OPSUMIT [Suspect]
     Active Substance: MACITENTAN
     Indication: PRODUCT USED FOR UNKNOWN INDICATION
     Dosage: 10 MG, UNK
     Route: 048
  2. TYLENOL [Concomitant]
     Active Substance: ACETAMINOPHEN
  3. METFORMIN [Concomitant]
     Active Substance: METFORMIN HYDROCHLORIDE
  4. DULERA [Concomitant]
     Active Substance: FORMOTEROL FUMARATE DIHYDRATE\MOMETASONE FUROATE
  5. BENZTROPINE [Concomitant]
     Active Substance: BENZTROPINE
  6. SPIRIVA [Concomitant]
     Active Substance: TIOTROPIUM BROMIDE MONOHYDRATE
  7. MECLIZINE HCL [Concomitant]
     Active Substance: MECLIZINE HYDROCHLORIDE
  8. SEROQUEL [Concomitant]
     Active Substance: QUETIAPINE FUMARATE
  9. XARELTO [Concomitant]
     Active Substance: RIVAROXABAN
  10. NAPROXEN. [Concomitant]
     Active Substance: NAPROXEN
  11. PROBIOTIC [Concomitant]
     Active Substance: PROBIOTICS NOS
  12. COGENTIN [Concomitant]
     Active Substance: BENZTROPINE MESYLATE
  13. FLUOXETINE [Concomitant]
     Active Substance: FLUOXETINE HYDROCHLORIDE
     Dosage: 10 MG, UNK
  14. NORVASC [Concomitant]
     Active Substance: AMLODIPINE BESYLATE
  15. GLIPIZIDE. [Concomitant]
     Active Substance: GLIPIZIDE
  16. MULTIVITAMIN [Concomitant]
     Active Substance: VITAMINS
  17. VENTOLIN [Concomitant]
     Active Substance: ALBUTEROL SULFATE
  18. AMLODIPINE [Concomitant]
     Active Substance: AMLODIPINE BESYLATE
  19. FERROUS SULFATE. [Concomitant]
     Active Substance: FERROUS SULFATE
  20. SILDENAFIL. [Concomitant]
     Active Substance: SILDENAFIL
  21. HYCET [Concomitant]
     Active Substance: ACETAMINOPHEN\HYDROCODONE BITARTRATE
  22. ASPIRIN. [Concomitant]
     Active Substance: ASPIRIN

REACTIONS (2)
  - Diarrhoea [Not Recovered/Not Resolved]
  - Abdominal pain lower [Not Recovered/Not Resolved]
